FAERS Safety Report 6788468-7 (Version None)
Quarter: 2010Q2

REPORT INFORMATION
  Report Type: 
  Country: None (occurrence: None)
  Receive Date: 20100623
  Receipt Date: 20100611
  Transmission Date: 20101027
  Serious: Yes (Other)
  Sender: FDA-Public Use
  Company Number: DE-AMGEN-KDL417972

PATIENT
  Sex: Male
  Weight: 80 kg

DRUGS (5)
  1. NPLATE [Suspect]
     Indication: DRUG USE FOR UNKNOWN INDICATION
     Dates: start: 20100201, end: 20100501
  2. CORTISONE [Concomitant]
  3. PREDNISONE [Concomitant]
  4. RITUXIMAB [Concomitant]
     Dates: start: 20100511
  5. IMMU-G [Concomitant]

REACTIONS (1)
  - THERAPEUTIC RESPONSE DECREASED [None]
